FAERS Safety Report 5706087-8 (Version None)
Quarter: 2008Q2

REPORT INFORMATION
  Report Type: 
  Country: None (occurrence: None)
  Receive Date: 20080415
  Receipt Date: 20080408
  Transmission Date: 20081010
  Serious: No
  Sender: FDA-Public Use
  Company Number: US-BAXTER-2008BH003342

PATIENT
  Age: 55 None
  Sex: Male

DRUGS (2)
  1. HEPARIN SODIUM [Suspect]
     Indication: PROPHYLAXIS
     Route: 065
     Dates: start: 20070601, end: 20071201
  2. HEPARIN SODIUM [Suspect]
     Route: 065
     Dates: start: 20070801, end: 20080101

REACTIONS (7)
  - ABDOMINAL PAIN [None]
  - ABDOMINAL PAIN UPPER [None]
  - BLOOD PRESSURE DECREASED [None]
  - PHARMACEUTICAL PRODUCT COMPLAINT [None]
  - SHOCK [None]
  - TACHYCARDIA [None]
  - VOMITING [None]
